FAERS Safety Report 6195134-8 (Version None)
Quarter: 2009Q2

REPORT INFORMATION
  Report Type: 
  Country: None (occurrence: None)
  Receive Date: 20090519
  Receipt Date: 20090504
  Transmission Date: 20091009
  Serious: Yes (Hospitalization)
  Sender: FDA-Public Use
  Company Number: FR-JNJFOC-20090402606

PATIENT
  Sex: Male

DRUGS (3)
  1. IXPRIM [Suspect]
     Indication: PAIN
     Dosage: 37.5MG/325 MG
     Route: 048
     Dates: start: 20081128, end: 20081202
  2. NABUCOX [Suspect]
     Indication: FLANK PAIN
     Route: 048
  3. FLUINDIONE [Interacting]
     Indication: DRUG USE FOR UNKNOWN INDICATION
     Route: 048

REACTIONS (3)
  - DRUG INTERACTION [None]
  - HAEMATOMA [None]
  - INTERNATIONAL NORMALISED RATIO INCREASED [None]
